FAERS Safety Report 23130837 (Version 2)
Quarter: 2023Q4

REPORT INFORMATION
  Report Type: Report from Study
  Country: US (occurrence: US)
  Receive Date: 20231031
  Receipt Date: 20231103
  Transmission Date: 20240109
  Serious: Yes (Other)
  Sender: FDA-Public Use
  Company Number: US-AGIOS-2310US03510

PATIENT
  Sex: Female

DRUGS (1)
  1. MITAPIVAT [Suspect]
     Active Substance: MITAPIVAT
     Indication: Pyruvate kinase deficiency anaemia
     Dosage: 20 MILLIGRAM
     Route: 065
     Dates: start: 20231026

REACTIONS (3)
  - Cardiac failure congestive [Unknown]
  - Arthralgia [Unknown]
  - Cough [Unknown]
